FAERS Safety Report 4319337-X (Version None)
Quarter: 2004Q1

REPORT INFORMATION
  Report Type: 
  Country: None (occurrence: None)
  Receive Date: 20040319
  Receipt Date: 20040218
  Transmission Date: 20041129
  Serious: Yes (Hospitalization)
  Sender: FDA-Public Use
  Company Number: PHRM2004FR00950

PATIENT
  Age: 39 Year
  Sex: Female
  Weight: 70 kg

DRUGS (2)
  1. TRILEPTAL [Suspect]
     Indication: AFFECTIVE DISORDER
     Dosage: 2400 MG DAILY
     Route: 048
     Dates: start: 20030329, end: 20030721
  2. LEPONEX [Suspect]
     Indication: SCHIZOPHRENIA
     Dosage: 600 MG DAILY
     Route: 048
     Dates: start: 20030617

REACTIONS (4)
  - ENEMA ADMINISTRATION [None]
  - GASTROINTESTINAL MOTILITY DISORDER [None]
  - INTESTINAL HYPOMOTILITY [None]
  - SUBILEUS [None]
